FAERS Safety Report 11880142 (Version 1)
Quarter: 2015Q4

REPORT INFORMATION
  Report Type: Report from Study
  Country: JP (occurrence: JP)
  Receive Date: 20151230
  Receipt Date: 20151230
  Transmission Date: 20160305
  Serious: Yes (Hospitalization, Other)
  Sender: FDA-Public Use
  Company Number: JP-B.I. PHARMACEUTICALS,INC./RIDGEFIELD-2015-BI-03138NB

PATIENT
  Age: 72 Year
  Sex: Male
  Weight: 71.1 kg

DRUGS (1)
  1. GILOTRIF [Suspect]
     Active Substance: AFATINIB
     Indication: LUNG ADENOCARCINOMA
     Dosage: 40 MG
     Route: 065
     Dates: start: 20140926

REACTIONS (8)
  - Respiratory failure [Unknown]
  - Cardiac failure congestive [Recovered/Resolved]
  - Rash [Recovered/Resolved]
  - Pulmonary oedema [Unknown]
  - Altered state of consciousness [Unknown]
  - Diarrhoea [Recovered/Resolved]
  - Cardiomyopathy [Unknown]
  - Pneumonia [Unknown]

NARRATIVE: CASE EVENT DATE: 20140928
